FAERS Safety Report 5575160-X (Version None)
Quarter: 2007Q4

REPORT INFORMATION
  Report Type: 
  Country: None (occurrence: None)
  Receive Date: 20071130
  Receipt Date: 20071002
  Transmission Date: 20080405
  Serious: No
  Sender: FDA-Public Use
  Company Number: US200709002594

PATIENT
  Age: 62 Year
  Sex: Male
  Weight: 101.1 kg

DRUGS (10)
  1. BYETTA [Suspect]
     Indication: TYPE 2 DIABETES MELLITUS
     Dosage: SEE IMAGE
     Route: 058
     Dates: start: 20070730, end: 20070830
  2. BYETTA [Suspect]
     Indication: TYPE 2 DIABETES MELLITUS
     Dosage: SEE IMAGE
     Route: 058
     Dates: start: 20070730, end: 20070830
  3. BYETTA [Suspect]
     Indication: TYPE 2 DIABETES MELLITUS
     Dosage: SEE IMAGE
     Route: 058
     Dates: start: 20070831, end: 20070907
  4. BYETTA [Suspect]
     Indication: TYPE 2 DIABETES MELLITUS
     Dosage: SEE IMAGE
     Route: 058
     Dates: start: 20070907
  5. METFORMIN HCL [Concomitant]
  6. GLIPIZIDE [Concomitant]
  7. ACTOS [Concomitant]
  8. ZOCOR [Concomitant]
  9. CIALIS [Concomitant]
  10. OMEPRAZOLE [Concomitant]

REACTIONS (7)
  - ARRHYTHMIA [None]
  - ASTHENIA [None]
  - FEELING JITTERY [None]
  - MALAISE [None]
  - NAUSEA [None]
  - VISUAL DISTURBANCE [None]
  - VOMITING [None]
